FAERS Safety Report 8909789 (Version 4)
Quarter: 2012Q4

REPORT INFORMATION
  Report Type: Report from Study
  Country: BR (occurrence: BR)
  Receive Date: 20121115
  Receipt Date: 20121213
  Transmission Date: 20130627
  Serious: Yes (Hospitalization)
  Sender: FDA-Public Use
  Company Number: BR-VERTEX PHARMACEUTICAL INC.-2012-024520

PATIENT
  Age: 51 Year
  Sex: Male
  Weight: 77 kg

DRUGS (5)
  1. VX-950 (TELAPREVIR) [Suspect]
     Indication: PRODUCT USED FOR UNKNOWN INDICATION
     Route: 048
  2. TENOFOVIR [Suspect]
     Indication: PRODUCT USED FOR UNKNOWN INDICATION
     Dosage: 300 mg, qd
     Route: 048
     Dates: start: 20100809
  3. LAMIVUDINE [Suspect]
     Indication: PRODUCT USED FOR UNKNOWN INDICATION
     Dosage: 150 mg, qd
     Route: 048
     Dates: start: 20100809
  4. EFAVIRENZ [Suspect]
     Indication: PRODUCT USED FOR UNKNOWN INDICATION
     Dosage: 600 mg, qd
     Route: 048
     Dates: start: 20100809
  5. ESCITALOPRAM [Concomitant]
     Indication: DEPRESSION
     Dosage: 10 mg, qd
     Route: 048

REACTIONS (1)
  - Cellulitis [Recovered/Resolved]
